FAERS Safety Report 5823725-X (Version None)
Quarter: 2008Q3

REPORT INFORMATION
  Report Type: 
  Country: None (occurrence: None)
  Receive Date: 20080725
  Receipt Date: 20080715
  Transmission Date: 20090109
  Serious: Yes (Other)
  Sender: FDA-Public Use
  Company Number: ES-ABBOTT-08P-144-0463689-00

PATIENT
  Age: 14 Year
  Sex: Male

DRUGS (3)
  1. KALETRA [Suspect]
     Indication: HIV INFECTION
     Route: 048
     Dates: start: 20061110
  2. TENOFOVIR [Interacting]
     Indication: HIV INFECTION
     Route: 048
     Dates: start: 20061110
  3. STAVUDINE [Concomitant]
     Indication: HIV INFECTION
     Route: 048
     Dates: start: 20061110

REACTIONS (2)
  - DRUG INTERACTION [None]
  - RENAL TUBULAR DISORDER [None]
